FAERS Safety Report 4444929-7 (Version None)
Quarter: 2004Q3

REPORT INFORMATION
  Report Type: 
  Country: None (occurrence: None)
  Receive Date: 20040903
  Receipt Date: 20040825
  Transmission Date: 20050211
  Serious: Yes (Hospitalization, Other)
  Sender: FDA-Public Use
  Company Number: 2004-08-0697

PATIENT
  Age: 58 Year
  Sex: Female
  Weight: 55 kg

DRUGS (2)
  1. INTRON A [Suspect]
     Indication: CONDYLOMA ACUMINATUM
     Dosage: 3 MIU TIW SUBCUTANEOUS
     Route: 058
     Dates: start: 20040621, end: 20040722
  2. CONCOR [Concomitant]

REACTIONS (12)
  - AGEUSIA [None]
  - ARTHRALGIA [None]
  - CHILLS [None]
  - CLOSTRIDIUM COLITIS [None]
  - CONFUSIONAL STATE [None]
  - DISORIENTATION [None]
  - DYSPEPSIA [None]
  - FALL [None]
  - LIMB INJURY [None]
  - MUSCLE CRAMP [None]
  - MYALGIA [None]
  - WHITE BLOOD CELL COUNT ABNORMAL [None]
